FAERS Safety Report 6762988-3 (Version None)
Quarter: 2010Q2

REPORT INFORMATION
  Report Type: 
  Country: None (occurrence: None)
  Receive Date: 20100609
  Receipt Date: 20100602
  Transmission Date: 20101027
  Serious: Yes (Other)
  Sender: FDA-Public Use
  Company Number: US-CEPHALON-2010000256

PATIENT
  Sex: Male
  Weight: 104 kg

DRUGS (7)
  1. TRISENOX [Suspect]
     Indication: ACUTE PROMYELOCYTIC LEUKAEMIA
     Route: 041
     Dates: start: 20091116
  2. TRISENOX [Suspect]
     Route: 041
  3. TRISENOX [Suspect]
     Route: 041
  4. TRISENOX [Suspect]
     Dosage: 12MG-16MG
     Route: 041
  5. IDARUBICIN HCL [Suspect]
     Indication: ACUTE PROMYELOCYTIC LEUKAEMIA
     Dates: start: 20091005, end: 20091011
  6. ATRA [Concomitant]
     Indication: ACUTE PROMYELOCYTIC LEUKAEMIA
  7. COMPAZINE [Concomitant]

REACTIONS (3)
  - EJECTION FRACTION DECREASED [None]
  - OEDEMA [None]
  - WEIGHT INCREASED [None]
